FAERS Safety Report 14855751 (Version 1)
Quarter: 2018Q2

REPORT INFORMATION
  Report Type: Spontaneous
  Country: US (occurrence: US)
  Receive Date: 20180507
  Receipt Date: 20180507
  Transmission Date: 20180711
  Serious: No
  Sender: FDA-Public Use
  Company Number: US-ROCHE-1949514

PATIENT
  Age: 68 Year
  Sex: Male
  Weight: 64.47 kg

DRUGS (1)
  1. ESBRIET [Suspect]
     Active Substance: PIRFENIDONE
     Indication: INTERSTITIAL LUNG DISEASE
     Dosage: 3 PILLS
     Route: 048
     Dates: start: 201506

REACTIONS (14)
  - Pneumonia [Unknown]
  - Respiratory disorder [Unknown]
  - Decreased appetite [Unknown]
  - Headache [Unknown]
  - Muscular weakness [Unknown]
  - Upper respiratory tract infection [Unknown]
  - Depression [Unknown]
  - Hypersensitivity [Unknown]
  - Nasopharyngitis [Unknown]
  - Cough [Unknown]
  - Weight decreased [Unknown]
  - Dizziness [Unknown]
  - Balance disorder [Unknown]
  - Sinusitis [Unknown]

NARRATIVE: CASE EVENT DATE: 201608
